FAERS Safety Report 7481968-6 (Version None)
Quarter: 2011Q2

REPORT INFORMATION
  Report Type: 
  Country: None (occurrence: None)
  Receive Date: 20110516
  Receipt Date: 20110506
  Transmission Date: 20111010
  Serious: Yes (Other)
  Sender: FDA-Public Use
  Company Number: HR-MERCK-1105USA01370

PATIENT
  Age: 63 Year
  Sex: Female
  Weight: 54 kg

DRUGS (1)
  1. FOSAMAX [Suspect]
     Indication: OSTEOPOROSIS
     Route: 048
     Dates: start: 20080723, end: 20091028

REACTIONS (7)
  - MUSCLE TWITCHING [None]
  - BONE PAIN [None]
  - PRURITUS [None]
  - MUSCULOSKELETAL DISCOMFORT [None]
  - ABDOMINAL DISCOMFORT [None]
  - FLATULENCE [None]
  - ARTHRALGIA [None]
